FAERS Safety Report 4294234-7 (Version None)
Quarter: 2004Q1

REPORT INFORMATION
  Report Type: 
  Country: None (occurrence: None)
  Receive Date: 20040211
  Receipt Date: 20040211
  Transmission Date: 20041129
  Serious: Yes (Life-Threatening, Hospitalization)
  Sender: FDA-Public Use
  Company Number: None

PATIENT
  Age: 17 Year
  Sex: Male

DRUGS (2)
  1. CELEXA [Suspect]
     Indication: INTENTIONAL OVERDOSE
     Dosage: 2400 MG
  2. CELEXA [Suspect]
     Indication: MAJOR DEPRESSION
     Dosage: 2400 MG

REACTIONS (8)
  - CONVULSION [None]
  - ELECTROCARDIOGRAM QRS COMPLEX PROLONGED [None]
  - INTENTIONAL OVERDOSE [None]
  - SELF-MEDICATION [None]
  - SINUS TACHYCARDIA [None]
  - SUPRAVENTRICULAR EXTRASYSTOLES [None]
  - TACHYARRHYTHMIA [None]
  - VENTRICULAR EXTRASYSTOLES [None]
